FAERS Safety Report 20909097 (Version 3)
Quarter: 2024Q3

REPORT INFORMATION
  Report Type: Report from Study
  Country: CA (occurrence: CA)
  Receive Date: 20220603
  Receipt Date: 20240919
  Transmission Date: 20241017
  Serious: Yes (Other)
  Sender: JOHNSON AND JOHNSON
  Company Number: CA-JNJFOC-20210305287

PATIENT
  Age: 10 Year
  Sex: Female
  Weight: 44.946 kg

DRUGS (7)
  1. REMICADE [Suspect]
     Active Substance: INFLIXIMAB
     Indication: Crohn^s disease
     Route: 041
     Dates: start: 20201223
  2. REMICADE [Suspect]
     Active Substance: INFLIXIMAB
     Dosage: DECREASED DOSE
     Route: 041
  3. REMICADE [Suspect]
     Active Substance: INFLIXIMAB
     Dosage: DOSE INCREASED
     Route: 041
  4. REMICADE [Suspect]
     Active Substance: INFLIXIMAB
     Route: 041
  5. REMICADE [Suspect]
     Active Substance: INFLIXIMAB
     Route: 041
  6. REMICADE [Suspect]
     Active Substance: INFLIXIMAB
     Route: 041
  7. REMICADE [Suspect]
     Active Substance: INFLIXIMAB
     Route: 041

REACTIONS (7)
  - Large intestinal ulcer haemorrhage [Unknown]
  - Large intestinal stenosis [Unknown]
  - Drug level increased [Not Recovered/Not Resolved]
  - Gastrointestinal inflammation [Unknown]
  - Drug level decreased [Unknown]
  - Abdominal pain [Recovering/Resolving]
  - Off label use [Unknown]
